FAERS Safety Report 20468127 (Version 1)
Quarter: 2022Q1

REPORT INFORMATION
  Report Type: Other
  Country: US (occurrence: None)
  Receive Date: 20220214
  Receipt Date: 20220214
  Transmission Date: 20220423
  Serious: Yes (Hospitalization)
  Sender: FDA-Public Use
  Company Number: US-ROCHE-2975142

PATIENT
  Age: 61 Year
  Sex: Female
  Weight: 55.388 kg

DRUGS (5)
  1. OCREVUS [Suspect]
     Active Substance: OCRELIZUMAB
     Indication: Primary progressive multiple sclerosis
     Dosage: NEXT DOSE RECEIVED AS 600 MG ONCE IN 6 MONTHS.
     Route: 042
  2. OCREVUS [Suspect]
     Active Substance: OCRELIZUMAB
     Indication: Relapsing multiple sclerosis
  3. LEVOTHYROXINE [Concomitant]
     Active Substance: LEVOTHYROXINE
  4. ESCITALOPRAM [Concomitant]
     Active Substance: ESCITALOPRAM OXALATE
  5. ALBUTEROL [Concomitant]
     Active Substance: ALBUTEROL
     Indication: Asthma

REACTIONS (10)
  - Fall [Unknown]
  - Contusion [Recovering/Resolving]
  - Pain [Recovering/Resolving]
  - Memory impairment [Not Recovered/Not Resolved]
  - Mental impairment [Unknown]
  - Memory impairment [Unknown]
  - Pain in extremity [Recovered/Resolved]
  - Confusional state [Recovered/Resolved]
  - Candida infection [Recovered/Resolved]
  - Blood glucose increased [Unknown]

NARRATIVE: CASE EVENT DATE: 20211201
